FAERS Safety Report 5651192-8 (Version None)
Quarter: 2008Q1

REPORT INFORMATION
  Report Type: 
  Country: None (occurrence: None)
  Receive Date: 20080131
  Receipt Date: 20071228
  Transmission Date: 20080703
  Serious: No
  Sender: FDA-Public Use
  Company Number: US200712001919

PATIENT
  Age: 77 Year
  Sex: Female

DRUGS (9)
  1. BYETTA [Suspect]
     Dosage: 10 UG, 2/D, SUBCUTANEOUS
     Route: 058
     Dates: start: 20070101
  2. METFORMIN HCL [Concomitant]
  3. LIPITOR [Concomitant]
  4. ASPIRIN [Concomitant]
  5. AVAPRO [Concomitant]
  6. PREVACID [Concomitant]
  7. LANOXIN [Concomitant]
  8. TORSEMIDE [Concomitant]
  9. MIRAPEX [Concomitant]

REACTIONS (2)
  - ABDOMINAL MASS [None]
  - WEIGHT DECREASED [None]
